FAERS Safety Report 13695771 (Version 1)
Quarter: 2017Q2

REPORT INFORMATION
  Report Type: Spontaneous
  Country: IT (occurrence: IT)
  Receive Date: 20170627
  Receipt Date: 20170627
  Transmission Date: 20170830
  Serious: Yes (Hospitalization)
  Sender: FDA-Public Use
  Company Number: PHHY2017IT091417

PATIENT
  Age: 53 Year
  Sex: Female

DRUGS (2)
  1. IBUPROFEN. [Suspect]
     Active Substance: IBUPROFEN
     Indication: HEADACHE
     Dosage: 800 MG, UNK
     Route: 048
  2. KETOROLAC [Interacting]
     Active Substance: KETOROLAC\KETOROLAC TROMETHAMINE
     Indication: MYALGIA
     Dosage: 30 MG, UNK
     Route: 030

REACTIONS (4)
  - Labelled drug-drug interaction medication error [Unknown]
  - Gastric ulcer [Unknown]
  - Contraindicated product administered [Unknown]
  - Drug prescribing error [Unknown]
